FAERS Safety Report 18079240 (Version 1)
Quarter: 2020Q3

REPORT INFORMATION
  Report Type: Spontaneous
  Country: US (occurrence: US)
  Receive Date: 20200728
  Receipt Date: 20200728
  Transmission Date: 20201103
  Serious: No
  Sender: FDA-Public Use
  Company Number: US-BAYER-2020-149433

PATIENT
  Age: 68 Year
  Sex: Male

DRUGS (2)
  1. VITRAKVI [Suspect]
     Active Substance: LAROTRECTINIB
     Indication: SARCOMA
     Dosage: 100 MG, QD
     Route: 048
     Dates: start: 202007
  2. VITRAKVI [Suspect]
     Active Substance: LAROTRECTINIB
     Indication: SARCOMA
     Dosage: 200 MG, QD
     Route: 048
     Dates: start: 202007

REACTIONS (3)
  - Off label use [None]
  - Paraesthesia [Not Recovered/Not Resolved]
  - Hypoaesthesia [Not Recovered/Not Resolved]

NARRATIVE: CASE EVENT DATE: 202007
